FAERS Safety Report 7734534-9 (Version None)
Quarter: 2011Q3

REPORT INFORMATION
  Report Type: 
  Country: None (occurrence: None)
  Receive Date: 20110907
  Receipt Date: 20110829
  Transmission Date: 20111222
  Serious: Yes (Hospitalization)
  Sender: FDA-Public Use
  Company Number: US-GLAXOSMITHKLINE-A0942714A

PATIENT
  Age: 69 Year
  Sex: Male

DRUGS (20)
  1. ZOCOR [Concomitant]
  2. THEO-DUR [Concomitant]
  3. METFORMIN HCL [Concomitant]
  4. UNIVASC [Concomitant]
  5. NITROSTAT [Concomitant]
  6. PLAVIX [Concomitant]
  7. LASIX [Concomitant]
  8. NITROGLYCERIN [Concomitant]
  9. CPAP [Concomitant]
  10. GLIPIZIDE [Concomitant]
  11. POTASSIUM [Concomitant]
  12. AVANDIA [Suspect]
     Indication: TYPE 2 DIABETES MELLITUS
     Dosage: 40MG PER DAY
     Route: 048
     Dates: start: 19890101, end: 20100822
  13. GLIPIZIDE [Concomitant]
  14. NAPROXEN (ALEVE) [Concomitant]
  15. BIPAP [Concomitant]
  16. ASPIRIN [Concomitant]
  17. ADVAIR DISKUS 100/50 [Concomitant]
  18. SPIRIVA [Concomitant]
  19. ZIAC [Concomitant]
  20. COLCHICINE [Concomitant]

REACTIONS (4)
  - PANCREATITIS [None]
  - MYOCARDIAL INFARCTION [None]
  - HEPATIC STEATOSIS [None]
  - DIVERTICULITIS [None]
